FAERS Safety Report 9837959 (Version 1)
Quarter: 2013Q4

REPORT INFORMATION
  Report Type: Spontaneous
  Country: US (occurrence: None)
  Receive Date: 20131205
  Receipt Date: 20131205
  Transmission Date: 20140711
  Serious: No
  Sender: FDA-Public Use
  Company Number: 163-POMAL-13103528

PATIENT
  Age: 81 Year
  Sex: Male

DRUGS (11)
  1. POMALYST (POMALIDOMIDE) (2 MILLIGRAM, CAPSULES) [Suspect]
     Indication: PLASMA CELL MYELOMA
     Route: 048
     Dates: start: 20130624
  2. ASPIRIN (ACETYLSALICYLIC ACID) [Concomitant]
  3. VITAMIN B-12 (CYANOCOBALAMIN) [Concomitant]
  4. VITAMIN D (ERGOCALIFEROL) [Concomitant]
  5. VITAMIN B 1 )THIAMINE HYDROCHLORIDE) [Concomitant]
  6. NITROSTAT (GLYCERYL TRINITRATE) [Concomitant]
  7. ISOSORBIDE DN (ISOSORBIDE DINITRATE) [Concomitant]
  8. ALBUTEROL (SALBUTAMOL) (SOLUTION) [Concomitant]
  9. OXYCONTIN (OXYCODONE HYDROCHLORIDE) [Concomitant]
  10. ZOCOR (SIMVASTATIN) [Concomitant]
  11. ACYCLOVIER (ACICLOVIR) [Concomitant]

REACTIONS (4)
  - Hypoaesthesia [None]
  - Paraesthesia [None]
  - Fatigue [None]
  - Dizziness [None]
